FAERS Safety Report 15773221 (Version 2)
Quarter: 2018Q4

REPORT INFORMATION
  Report Type: Spontaneous
  Country: TR (occurrence: TR)
  Receive Date: 20181228
  Receipt Date: 20181228
  Transmission Date: 20190205
  Serious: Yes (Other)
  Sender: FDA-Public Use
  Company Number: PHHY2018TR192211

PATIENT
  Age: 30 Year
  Sex: Male
  Weight: 82 kg

DRUGS (1)
  1. PREDNISOLONE. [Suspect]
     Active Substance: PREDNISOLONE
     Indication: TOXIC EPIDERMAL NECROLYSIS
     Dosage: 1 G, QD
     Route: 042

REACTIONS (2)
  - Toxic epidermal necrolysis [Unknown]
  - Condition aggravated [Unknown]
